FAERS Safety Report 4958304-X (Version None)
Quarter: 2006Q1

REPORT INFORMATION
  Report Type: 
  Country: None (occurrence: None)
  Receive Date: 20060324
  Receipt Date: 20060313
  Transmission Date: 20060701
  Serious: Yes (Other)
  Sender: FDA-Public Use
  Company Number: 13695

PATIENT
  Age: 68 Year
  Sex: Female

DRUGS (2)
  1. FLUOROURACIL [Suspect]
     Indication: RECTAL CANCER
     Dosage: 500 MG/M2 WEEKLY IV
     Route: 042
     Dates: start: 20021001, end: 20021201
  2. LEUCOVORIN [Suspect]
     Indication: RECTAL CANCER
     Dosage: 500 MG WEEKLY IV
     Route: 042
     Dates: start: 20021001

REACTIONS (3)
  - DRUG TOXICITY [None]
  - LACRIMATION INCREASED [None]
  - PHOTODERMATOSIS [None]
